FAERS Safety Report 17497983 (Version 1)
Quarter: 2020Q1

REPORT INFORMATION
  Report Type: Spontaneous
  Country: US (occurrence: US)
  Receive Date: 20200304
  Receipt Date: 20200304
  Transmission Date: 20200409
  Serious: Yes (Hospitalization)
  Sender: FDA-Public Use
  Company Number: US-MYLANLABS-2020M1024057

PATIENT
  Age: 44 Year
  Sex: Male

DRUGS (14)
  1. CYTARABINE. [Concomitant]
     Active Substance: CYTARABINE
     Indication: ACUTE MYELOID LEUKAEMIA
     Dosage: INDUCTION CHEMOTHERAPY WITH 1 CYCLE
     Route: 042
  2. FILGRASTIM [Concomitant]
     Active Substance: FILGRASTIM
     Indication: PRODUCT USED FOR UNKNOWN INDICATION
     Dosage: THE LAST DOSE OF FILGRASTIM WAS ADMINISTERED 20 DAYS...
     Route: 065
  3. DECITABINE. [Suspect]
     Active Substance: DECITABINE
     Indication: ACUTE MYELOID LEUKAEMIA
     Dosage: PALLIATIVE THERAPY
     Route: 065
  4. MITOXANTRONE [Suspect]
     Active Substance: MITOXANTRONE HYDROCHLORIDE
     Indication: ACUTE MYELOID LEUKAEMIA
     Dosage: 10 MILLIGRAM/SQ. METER, QD, REINDUCTION CHEMOTHERAPY
     Route: 042
  5. CYTARABINE. [Concomitant]
     Active Substance: CYTARABINE
     Dosage: REINDUCTION CHEMOTHERAPY CYTARABINE 2 G/M2
     Route: 042
  6. RITONAVIR. [Concomitant]
     Active Substance: RITONAVIR
     Indication: HIV INFECTION
     Dosage: SHE HAD BEEN RECEIVING HIGHLY ACTIVE ANTIRETROVIRAL THERAPY OF UNKNOWN DURATION...
     Route: 065
  7. ETOPOSIDE. [Suspect]
     Active Substance: ETOPOSIDE
     Indication: ACUTE MYELOID LEUKAEMIA
     Dosage: 100 MILLIGRAM/SQ. METER, QD, REINDUCTION CHEMOTHERAPY
     Route: 042
  8. CYTARABINE. [Concomitant]
     Active Substance: CYTARABINE
     Dosage: 1 CYCLE OF CONSOLIDATION CHEMOTHERAPY CYTARABINE 1 G/M2
     Route: 042
  9. ATAZANAVIR. [Concomitant]
     Active Substance: ATAZANAVIR
     Indication: HIV INFECTION
     Dosage: SHE HAD BEEN RECEIVING HIGHLY ACTIVE ANTIRETROVIRAL THERAPY OF UNKNOWN DURATION...
     Route: 048
  10. CLOFARABINE. [Concomitant]
     Active Substance: CLOFARABINE
     Indication: ACUTE MYELOID LEUKAEMIA
     Dosage: REINDUCTION CHEMOTHERAPY WITH GRANULOCYTE-COLONY STIMULATING FACTOR-PRIMED CLOFARABINE
     Route: 042
  11. EMTRICITABINE W/TENOFOVIR [Concomitant]
     Active Substance: EMTRICITABINE\TENOFOVIR DISOPROXIL
     Indication: HIV INFECTION
     Dosage: SHE HAD BEEN RECEIVING HIGHLY ACTIVE ANTIRETROVIRAL THERAPY OF UNKNOWN DURATION...
     Route: 065
  12. CYTARABINE. [Concomitant]
     Active Substance: CYTARABINE
     Dosage: CONSOLIDATION CHEMOTHERAPY WITH 2 CYCLES OF HIGH-DOSE CYTARABINE...
     Route: 042
  13. CLOFARABINE. [Concomitant]
     Active Substance: CLOFARABINE
     Dosage: RECEIVED 1 CYCLE OF CONSOLIDATION CHEMOTHERAPY
     Route: 042
  14. IDARUBICIN [Suspect]
     Active Substance: IDARUBICIN
     Indication: ACUTE MYELOID LEUKAEMIA
     Dosage: INDUCTION CHEMOTHERAPY WITH 1 CYCLE
     Route: 042

REACTIONS (1)
  - Drug ineffective [Unknown]
